FAERS Safety Report 8525946-4 (Version None)
Quarter: 2012Q3

REPORT INFORMATION
  Report Type: 
  Country: None (occurrence: None)
  Receive Date: 20120720
  Receipt Date: 20120716
  Transmission Date: 20120928
  Serious: No
  Sender: FDA-Public Use
  Company Number: US-PFIZER INC-2012156991

PATIENT
  Sex: Female
  Weight: 63 kg

DRUGS (6)
  1. PREMPRO [Suspect]
     Indication: MENOPAUSAL SYMPTOMS
     Dosage: 1 DF, 1X/DAY
     Route: 048
     Dates: start: 20120625
  2. MIRTAZAPINE [Suspect]
     Indication: ANXIETY
     Dosage: UNK
  3. XANAX [Suspect]
     Dosage: 0.25 MG, 2X/DAY
     Dates: start: 20120501
  4. XANAX [Suspect]
     Indication: PANIC ATTACK
     Dosage: 0.25 MG, 3X/DAY
     Route: 048
  5. XANAX [Suspect]
     Dosage: 0.25 MG, 1X/DAY
     Route: 048
  6. AMBIEN [Concomitant]
     Indication: INSOMNIA
     Dosage: UNK

REACTIONS (4)
  - DRUG DOSE OMISSION [None]
  - INSOMNIA [None]
  - HYPOAESTHESIA [None]
  - DRUG INEFFECTIVE [None]
